FAERS Safety Report 4648025-5 (Version None)
Quarter: 2005Q2

REPORT INFORMATION
  Report Type: 
  Country: None (occurrence: None)
  Receive Date: 20050331
  Receipt Date: 20050117
  Transmission Date: 20051028
  Serious: No
  Sender: FDA-Public Use
  Company Number: 05P-163-0286900-00

PATIENT
  Age: 71 Year
  Sex: Female
  Weight: 72.5755 kg

DRUGS (5)
  1. HUMIRA [Suspect]
     Indication: RHEUMATOID ARTHRITIS
     Dosage: 40 MG, 1 IN 2 WK, SUBCUTANEOUS
     Route: 058
     Dates: start: 20040901, end: 20041228
  2. BUCINDOLOL HYDROCHLORIDE [Concomitant]
  3. OXAPROZIN [Concomitant]
  4. GLUCOSAMINE [Concomitant]
  5. LEFLUNOMIDE [Concomitant]

REACTIONS (6)
  - BLOOD PRESSURE INCREASED [None]
  - BRONCHIAL INFECTION [None]
  - COUGH [None]
  - HAEMOPTYSIS [None]
  - NASOPHARYNGITIS [None]
  - SINUSITIS [None]
